FAERS Safety Report 6610434-2 (Version None)
Quarter: 2010Q1

REPORT INFORMATION
  Report Type: 
  Country: None (occurrence: None)
  Receive Date: 20100302
  Receipt Date: 20100218
  Transmission Date: 20100710
  Serious: Yes (Hospitalization)
  Sender: FDA-Public Use
  Company Number: FR-WYE-H13738510

PATIENT
  Sex: Female

DRUGS (9)
  1. INIPOMP [Suspect]
     Dosage: DAILY DOSE UNKNOWN
     Route: 048
     Dates: end: 20100109
  2. FUROSEMIDE [Suspect]
     Dosage: UNKNOWN
     Route: 048
     Dates: end: 20100109
  3. DIGOXIN [Suspect]
     Dosage: UNKNOWN
     Route: 048
     Dates: end: 20100109
  4. VASTAREL [Concomitant]
     Dosage: 35 MG, FREQUENCY UNKNOWN
  5. TARDYFERON [Concomitant]
     Dosage: 80 MG, FREQUENCY UNKNOWN
  6. PREDNISONE [Concomitant]
     Dosage: 20 MG, FREQUENCY UNKNOWN
  7. PREVISCAN [Concomitant]
     Dosage: UNKNOWN
  8. SEROPLEX [Suspect]
     Dosage: UNKNOWN
     Route: 048
     Dates: end: 20100109
  9. PRINZIDE [Suspect]
     Dosage: UNKNOWN
     Route: 048
     Dates: end: 20100109

REACTIONS (1)
  - HYPONATRAEMIA [None]
